FAERS Safety Report 6706670-7 (Version None)
Quarter: 2010Q2

REPORT INFORMATION
  Report Type: 
  Country: None (occurrence: None)
  Receive Date: 20100503
  Receipt Date: 20100401
  Transmission Date: 20101027
  Serious: No
  Sender: FDA-Public Use
  Company Number: US-BAYER-201013923BCC

PATIENT
  Age: 75 Year
  Sex: Female
  Weight: 73 kg

DRUGS (6)
  1. ALEVE [Suspect]
     Indication: MUSCLE SPASMS
     Dosage: TOTAL DAILY DOSE: 440 MG  UNIT DOSE: 220 MG
     Route: 048
     Dates: start: 20100301
  2. ALEVE [Suspect]
     Route: 048
     Dates: start: 20060626
  3. UNKNOWN BLOOD PRESSURE MEDICATION [Concomitant]
     Route: 065
  4. UNKNOWN CHOLESTEROL MEDICATION [Concomitant]
     Route: 065
  5. SYNTHROID [Concomitant]
     Route: 065
  6. UNKNOWN MEDICATION FOR GASTROESOPHAGEAL REFLUX DISEASE [Concomitant]
     Route: 065

REACTIONS (2)
  - MUSCLE SPASMS [None]
  - NECK PAIN [None]
